FAERS Safety Report 18653694 (Version 1)
Quarter: 2020Q4

REPORT INFORMATION
  Report Type: Report from Study
  Country: None (occurrence: CO)
  Receive Date: 20201223
  Receipt Date: 20201223
  Transmission Date: 20210114
  Serious: Yes (Death, Hospitalization)
  Sender: FDA-Public Use
  Company Number: CO-ABBVIE-20K-036-3659996-00

PATIENT
  Age: 69 Year
  Sex: Male
  Weight: 92 kg

DRUGS (1)
  1. IMBRUVICA [Suspect]
     Active Substance: IBRUTINIB
     Indication: CHRONIC LYMPHOCYTIC LEUKAEMIA
     Route: 048
     Dates: start: 20190313

REACTIONS (2)
  - Death [Fatal]
  - COVID-19 [Not Recovered/Not Resolved]

NARRATIVE: CASE EVENT DATE: 20201104
